FAERS Safety Report 4331020-3 (Version None)
Quarter: 2004Q1

REPORT INFORMATION
  Report Type: 
  Country: None (occurrence: None)
  Receive Date: 20040329
  Receipt Date: 20040314
  Transmission Date: 20041129
  Serious: Yes (Hospitalization)
  Sender: FDA-Public Use
  Company Number: K200400402

PATIENT
  Age: 43 Year
  Sex: Female

DRUGS (2)
  1. METHIMAZOLE [Suspect]
     Indication: HYPERTHYROIDISM
     Dosage: 10 MG, TID
     Dates: start: 20011104
  2. PROPRANOLOL [Suspect]
     Indication: HYPERTHYROIDISM
     Dosage: 20 MG, TID
     Dates: start: 20011104

REACTIONS (2)
  - CHOLESTASIS [None]
  - WHITE BLOOD CELL COUNT INCREASED [None]
